FAERS Safety Report 6654984-1 (Version None)
Quarter: 2010Q1

REPORT INFORMATION
  Report Type: 
  Country: None (occurrence: None)
  Receive Date: 20100329
  Receipt Date: 20100319
  Transmission Date: 20100710
  Serious: Yes (Life-Threatening, Hospitalization, Other)
  Sender: FDA-Public Use
  Company Number: DE-TEVA-202263USA

PATIENT
  Age: 52 Year
  Sex: Male
  Weight: 50 kg

DRUGS (9)
  1. PIMOZIDE TABLETS [Suspect]
     Route: 048
     Dates: start: 20060101, end: 20090127
  2. METHADONE HYDROCHLORIDE [Suspect]
     Indication: DRUG DEPENDENCE
     Route: 048
     Dates: start: 20030101
  3. METHADONE HYDROCHLORIDE [Suspect]
     Dates: start: 20090204
  4. LACTULOSE [Concomitant]
     Route: 048
  5. ATAZANAVIR SULFATE [Concomitant]
     Indication: ACQUIRED IMMUNODEFICIENCY SYNDROME
     Dates: start: 20040101
  6. DIAZEPAM [Concomitant]
     Route: 048
  7. LAMIVUDINE [Concomitant]
     Indication: ACQUIRED IMMUNODEFICIENCY SYNDROME
     Route: 048
     Dates: start: 20040101
  8. RITONAVIR [Concomitant]
     Indication: ACQUIRED IMMUNODEFICIENCY SYNDROME
     Route: 048
     Dates: start: 20040101
  9. STAVUDINE [Concomitant]
     Indication: ACQUIRED IMMUNODEFICIENCY SYNDROME
     Dates: start: 20040101

REACTIONS (4)
  - CARDIAC ARREST [None]
  - CONTRAINDICATION TO MEDICAL TREATMENT [None]
  - LONG QT SYNDROME [None]
  - TORSADE DE POINTES [None]
